FAERS Safety Report 19459161 (Version 1)
Quarter: 2021Q2

REPORT INFORMATION
  Report Type: Report from Study
  Country: FR (occurrence: FR)
  Receive Date: 20210624
  Receipt Date: 20210624
  Transmission Date: 20210717
  Serious: Yes (Hospitalization, Other)
  Sender: FDA-Public Use
  Company Number: FR-GILEAD-2021-0529641

PATIENT
  Sex: Female

DRUGS (17)
  1. SACITUZUMAB GOVITECAN. [Suspect]
     Active Substance: SACITUZUMAB GOVITECAN
     Indication: TRIPLE NEGATIVE BREAST CANCER
     Dosage: 10 MG/KG (840 MG)
     Route: 065
     Dates: start: 20210402, end: 20210402
  2. TRIMEBUTINE [Concomitant]
     Active Substance: TRIMEBUTINE
     Indication: PAIN
     Dosage: 2 TABLETS MORNING, MIDDAY AND EVENING, PRN
     Route: 048
     Dates: start: 20210424
  3. SMECTA [Concomitant]
     Active Substance: MONTMORILLONITE
     Indication: DIARRHOEA
     Dosage: 2 SACHETS MORNING, MIDDAY AND EVENING, PRN
     Route: 048
     Dates: start: 20210416
  4. LEVOTHYROX [Concomitant]
     Active Substance: LEVOTHYROXINE
     Indication: PRODUCT USED FOR UNKNOWN INDICATION
     Dosage: 1 TABLET IN  MORNING
     Route: 065
     Dates: start: 20210413
  5. LEVOCETIRIZINE [Concomitant]
     Active Substance: LEVOCETIRIZINE
     Indication: PRODUCT USED FOR UNKNOWN INDICATION
     Dosage: 1 TABLET, BID
     Route: 048
     Dates: start: 20210428
  6. PANTOPRAZOLE SODIUM. [Concomitant]
     Active Substance: PANTOPRAZOLE SODIUM
     Indication: PRODUCT USED FOR UNKNOWN INDICATION
     Dosage: 2 TABLETS IN THE EVENING
     Route: 048
     Dates: start: 20210413
  7. LOPERAMIDE [Concomitant]
     Active Substance: LOPERAMIDE
     Indication: PRODUCT USED FOR UNKNOWN INDICATION
     Dosage: 1 CAPSULE AS NEEDED, TID
     Route: 048
     Dates: start: 20210413
  8. SACITUZUMAB GOVITECAN. [Suspect]
     Active Substance: SACITUZUMAB GOVITECAN
     Dosage: 10 MG/KG (842 MG)
     Route: 065
     Dates: start: 20210408, end: 20210408
  9. PRIMPERAN [Concomitant]
     Active Substance: METOCLOPRAMIDE HYDROCHLORIDE
     Indication: NAUSEA
     Dosage: 1 TABLET MORNING, MIDDAY AND EVENING, PRN
     Route: 048
     Dates: start: 20210424
  10. SOLUPRED [PREDNISOLONE METASULFOBENZOATE SODIUM] [Concomitant]
     Active Substance: PREDNISOLONE SODIUM METAZOATE
     Indication: PRODUCT USED FOR UNKNOWN INDICATION
     Dosage: 80 MG IN MORNING
     Route: 048
     Dates: start: 20210423
  11. HYDROXYZINE ARROW [Concomitant]
     Active Substance: HYDROXYZINE HYDROCHLORIDE
     Indication: PRODUCT USED FOR UNKNOWN INDICATION
     Dosage: 1 TABLET IN THE EVENING
     Route: 048
     Dates: start: 20210413
  12. FUROSEMIDE. [Concomitant]
     Active Substance: FUROSEMIDE
     Indication: PRODUCT USED FOR UNKNOWN INDICATION
     Dosage: 1 TABLET IN MORNING FOR 3 DAYS
     Route: 048
     Dates: start: 20210427, end: 20210430
  13. SODIUM ALGINATE;SODIUM BICARBONATE [Concomitant]
     Active Substance: SODIUM ALGINATE\SODIUM BICARBONATE
     Indication: PRODUCT USED FOR UNKNOWN INDICATION
     Dosage: 1 SACHET MORNING, MIDDAY AND EVENING
     Route: 048
     Dates: start: 20210416
  14. DOLIPRANE [Concomitant]
     Active Substance: ACETAMINOPHEN
     Indication: PRODUCT USED FOR UNKNOWN INDICATION
     Dosage: 2 TO 6 CAPSULES, DAILY PRN
     Route: 048
     Dates: start: 20210424
  15. SPASFON [PHLOROGLUCINOL;TRIMETHYLPHLOROGLUCINOL] [Concomitant]
     Active Substance: PHLOROGLUCINOL\1,3,5-TRIMETHOXYBENZENE
     Indication: PAIN
     Dosage: 2 TABLETS MORNING, MIDDAY, EVENING AND NIGHT, PRN
     Route: 048
     Dates: start: 20210424
  16. LEVOTHYROX [Concomitant]
     Active Substance: LEVOTHYROXINE
     Dosage: 1 TABLET IN  MORNING
     Route: 065
     Dates: start: 20210413
  17. DELURSAN [Concomitant]
     Active Substance: URSODIOL
     Indication: PRODUCT USED FOR UNKNOWN INDICATION
     Dosage: 0.5 OF A TABLET MORNING AND EVENING
     Route: 048
     Dates: start: 20210413

REACTIONS (4)
  - Febrile neutropenia [Unknown]
  - Diarrhoea [Unknown]
  - Toxicity to various agents [Unknown]
  - Disease progression [Unknown]
